FAERS Safety Report 7192693-3 (Version None)
Quarter: 2010Q4

REPORT INFORMATION
  Report Type: 
  Country: None (occurrence: None)
  Receive Date: 20101221
  Receipt Date: 20101221
  Transmission Date: 20110411
  Serious: Yes (Other)
  Sender: FDA-Public Use
  Company Number: None

PATIENT
  Age: 64 Year
  Sex: Female
  Weight: 56.6996 kg

DRUGS (1)
  1. CAPZASIN HP CAPSATIN 0.1 CHATTEM [Suspect]
     Indication: PAIN
     Dosage: APPLY TO PAIN
     Dates: start: 20101216, end: 20101216

REACTIONS (2)
  - BLISTER [None]
  - PAIN [None]
